FAERS Safety Report 24845643 (Version 1)
Quarter: 2025Q1

REPORT INFORMATION
  Report Type: Spontaneous
  Country: IT (occurrence: IT)
  Receive Date: 20250115
  Receipt Date: 20250115
  Transmission Date: 20250409
  Serious: Yes (Hospitalization, Other)
  Sender: BRISTOL-MYERS SQUIBB COMPANY
  Company Number: IT-BRISTOL-MYERS SQUIBB COMPANY-2024-181149

PATIENT
  Age: 86 Year
  Sex: Female

DRUGS (4)
  1. APIXABAN [Interacting]
     Active Substance: APIXABAN
     Indication: Superficial vein thrombosis
     Route: 048
     Dates: start: 2021
  2. DABIGATRAN [Interacting]
     Active Substance: DABIGATRAN
     Indication: Product used for unknown indication
     Route: 048
  3. AMOXICILLIN\CLAVULANIC ACID [Concomitant]
     Active Substance: AMOXICILLIN\CLAVULANIC ACID
     Indication: Infection prophylaxis
  4. POLYETHYLENE GLYCOLS [Concomitant]
     Active Substance: POLYETHYLENE GLYCOLS
     Indication: Enema administration

REACTIONS (3)
  - Haematoma [Recovered/Resolved]
  - Off label use [Unknown]
  - Drug interaction [Unknown]
